FAERS Safety Report 6378633-5 (Version None)
Quarter: 2009Q3

REPORT INFORMATION
  Report Type: 
  Country: None (occurrence: None)
  Receive Date: 20090921
  Receipt Date: 20090908
  Transmission Date: 20100115
  Serious: Yes (Hospitalization)
  Sender: FDA-Public Use
  Company Number: 2009SP002338

PATIENT
  Age: 74 Year
  Sex: Female
  Weight: 60.3 kg

DRUGS (5)
  1. BROVANA [Suspect]
     Indication: CHRONIC OBSTRUCTIVE PULMONARY DISEASE
     Dosage: 15 UG/2ML; BID; INHALATION
     Route: 055
     Dates: start: 20090101, end: 20090901
  2. BROVANA [Suspect]
     Indication: CHRONIC OBSTRUCTIVE PULMONARY DISEASE
     Dosage: 15 UG/2ML; BID; INHALATION
     Route: 055
     Dates: start: 20090908
  3. SPIRIVA [Concomitant]
  4. PULMICORT [Concomitant]
  5. ALBUTEROL [Concomitant]

REACTIONS (1)
  - INTESTINAL OBSTRUCTION [None]
